FAERS Safety Report 22094146 (Version 1)
Quarter: 2023Q1

REPORT INFORMATION
  Report Type: Spontaneous
  Country: AU (occurrence: None)
  Receive Date: 20230314
  Receipt Date: 20230314
  Transmission Date: 20230417
  Serious: Yes (Hospitalization, Other)
  Sender: FDA-Public Use
  Company Number: 2023A061017

PATIENT
  Age: 46 Year
  Sex: Male
  Weight: 69 kg

DRUGS (23)
  1. QUETIAPINE FUMARATE [Suspect]
     Active Substance: QUETIAPINE FUMARATE
     Indication: Schizoaffective disorder
     Dosage: MANE200.0MG UNKNOWN
  2. QUETIAPINE [Suspect]
     Active Substance: QUETIAPINE
     Indication: Schizoaffective disorder
     Dosage: IR 300MG NOCTE300.0MG UNKNOWN
  3. QUETIAPINE [Suspect]
     Active Substance: QUETIAPINE
     Indication: Schizoaffective disorder
     Dosage: AS NEEDED UNKNOWN
  4. METOPROLOL [Suspect]
     Active Substance: METOPROLOL
     Indication: Hypertension
  5. AMLODIPINE BESYLATE [Suspect]
     Active Substance: AMLODIPINE BESYLATE
     Indication: Hypertension
  6. ATORVASTATIN CALCIUM [Suspect]
     Active Substance: ATORVASTATIN CALCIUM
     Indication: Dyslipidaemia
     Dosage: NOCTE
  7. PRAZOSIN HYDROCHLORIDE [Suspect]
     Active Substance: PRAZOSIN HYDROCHLORIDE
     Indication: Hypertension
     Dosage: MANE
  8. FUROSEMIDE [Suspect]
     Active Substance: FUROSEMIDE
     Indication: Product used for unknown indication
     Dosage: MANE
  9. ARIPIPRAZOLE [Suspect]
     Active Substance: ARIPIPRAZOLE
     Indication: Schizoaffective disorder
     Dosage: MORNING
     Route: 048
  10. ARIPIPRAZOLE [Suspect]
     Active Substance: ARIPIPRAZOLE
     Indication: Schizoaffective disorder
     Dosage: MANE
     Route: 048
  11. BENZTROPINE [Suspect]
     Active Substance: BENZTROPINE
     Indication: Product used for unknown indication
     Dosage: MANE
  12. FUROSEMIDE [Suspect]
     Active Substance: FUROSEMIDE
     Indication: Hypertension
     Dosage: MANE
  13. LITHIUM CARBONATE [Suspect]
     Active Substance: LITHIUM CARBONATE
     Indication: Schizoaffective disorder
  14. MELATONIN [Suspect]
     Active Substance: MELATONIN
     Indication: Product used for unknown indication
     Dosage: NOCTE
  15. INSULIN ASPART\INSULIN DEGLUDEC [Suspect]
     Active Substance: INSULIN ASPART\INSULIN DEGLUDEC
     Indication: Type 1 diabetes mellitus
     Dosage: 70/30, 24 US BREAKFAST, 14 US LUNCH
  16. VALPROATE SODIUM [Suspect]
     Active Substance: VALPROATE SODIUM
     Indication: Schizoaffective disorder
  17. OLANZAPINE [Suspect]
     Active Substance: OLANZAPINE
     Indication: Product used for unknown indication
     Dosage: NOCTE
     Route: 048
  18. VALPROATE SODIUM [Suspect]
     Active Substance: VALPROATE SODIUM
     Indication: Product used for unknown indication
     Dosage: MANE
  19. VALPROATE SODIUM [Suspect]
     Active Substance: VALPROATE SODIUM
     Indication: Product used for unknown indication
     Dosage: NOCTE
     Route: 048
  20. BISOPROLOL [Suspect]
     Active Substance: BISOPROLOL
     Indication: Product used for unknown indication
     Dosage: NOCTE
  21. BISOPROLOL [Suspect]
     Active Substance: BISOPROLOL
     Indication: Product used for unknown indication
     Dosage: MANE
     Route: 048
  22. PERINDOPRIL [Suspect]
     Active Substance: PERINDOPRIL
     Indication: Product used for unknown indication
     Dosage: MANE
  23. INSULIN ASPART [Suspect]
     Active Substance: INSULIN ASPART
     Indication: Product used for unknown indication

REACTIONS (32)
  - Cardiac dysfunction [Unknown]
  - Cardiomyopathy [Unknown]
  - Hyperkalaemia [Unknown]
  - Blood glucose abnormal [Unknown]
  - Troponin T increased [Unknown]
  - Echocardiogram abnormal [Unknown]
  - Systolic dysfunction [Unknown]
  - Left atrial dilatation [Unknown]
  - Red cell distribution width increased [Unknown]
  - Red blood cell count decreased [Unknown]
  - Blood alkaline phosphatase increased [Unknown]
  - Globulins increased [Unknown]
  - Neutrophil count increased [Unknown]
  - Non-high-density lipoprotein cholesterol increased [Unknown]
  - Drug level below therapeutic [Unknown]
  - Blood albumin decreased [Unknown]
  - Blood urea increased [Unknown]
  - Blood magnesium increased [Unknown]
  - Vitamin B12 increased [Unknown]
  - Haematocrit decreased [Unknown]
  - Lymphocyte count increased [Unknown]
  - Blood potassium increased [Unknown]
  - Blood creatine increased [Unknown]
  - Glomerular filtration rate decreased [Unknown]
  - Diastolic dysfunction [Unknown]
  - Blood thyroid stimulating hormone increased [Unknown]
  - Tri-iodothyronine decreased [Unknown]
  - Thyroxine decreased [Unknown]
  - Haemoglobin decreased [Unknown]
  - Blood cholesterol increased [Unknown]
  - Aspartate aminotransferase increased [Unknown]
  - High density lipoprotein decreased [Unknown]

NARRATIVE: CASE EVENT DATE: 20220705
